FAERS Safety Report 11973074 (Version 1)
Quarter: 2016Q1

REPORT INFORMATION
  Report Type: Spontaneous
  Country: AU (occurrence: AU)
  Receive Date: 20160128
  Receipt Date: 20160128
  Transmission Date: 20160526
  Serious: Yes (Other)
  Sender: FDA-Public Use
  Company Number: AU-BAXTER-2016BAX003148

PATIENT
  Age: 30 Year
  Sex: Male

DRUGS (2)
  1. BAXTER 0.5% METRONIDAZOLE BP INTRAVENOUS INFUSION 500MG_100ML INJECTIO [Suspect]
     Active Substance: METRONIDAZOLE
     Indication: GINGIVITIS
     Route: 065
  2. AMOXICILLIN. [Concomitant]
     Active Substance: AMOXICILLIN
     Indication: GINGIVITIS
     Route: 065

REACTIONS (3)
  - Sudden hearing loss [Unknown]
  - Ototoxicity [Unknown]
  - Deafness neurosensory [Unknown]
